FAERS Safety Report 5704373-9 (Version None)
Quarter: 2008Q2

REPORT INFORMATION
  Report Type: 
  Country: None (occurrence: None)
  Receive Date: 20080414
  Receipt Date: 20080404
  Transmission Date: 20081010
  Serious: Yes (Hospitalization)
  Sender: FDA-Public Use
  Company Number: A0716759A

PATIENT
  Sex: Female

DRUGS (7)
  1. AVANDIA [Suspect]
     Route: 048
     Dates: start: 20070117, end: 20070613
  2. ASPIRIN [Concomitant]
  3. LIPITOR [Concomitant]
  4. AVAPRO [Concomitant]
  5. RENITEC ENALAPRIL [Concomitant]
  6. RANIDINE [Concomitant]
  7. UNSPECIFIED MEDICATION [Concomitant]

REACTIONS (4)
  - CARDIAC FAILURE CONGESTIVE [None]
  - DYSPNOEA [None]
  - LEFT VENTRICULAR DYSFUNCTION [None]
  - OEDEMA [None]
